FAERS Safety Report 7034588-1 (Version None)
Quarter: 2010Q4

REPORT INFORMATION
  Report Type: 
  Country: None (occurrence: None)
  Receive Date: 20101008
  Receipt Date: 20101004
  Transmission Date: 20110411
  Serious: Yes (Life-Threatening)
  Sender: FDA-Public Use
  Company Number: FR-ASTRAZENECA-2010SE46586

PATIENT
  Age: 20017 Day
  Sex: Female
  Weight: 120 kg

DRUGS (10)
  1. DIPRIVAN [Suspect]
     Route: 042
     Dates: start: 20100615, end: 20100615
  2. SUCCINYLCHOLINE CHLORIDE [Suspect]
     Route: 042
     Dates: start: 20100615, end: 20100615
  3. SUFENTA PRESERVATIVE FREE [Suspect]
     Route: 042
     Dates: start: 20100615, end: 20100615
  4. TENORDATE [Concomitant]
     Indication: HYPERTENSION
     Route: 048
  5. CO-OLMETEC [Concomitant]
     Dosage: 20 + 12.5 MG, 2 TABLETS, DAILY.
     Route: 048
  6. RILMENIDINE [Concomitant]
     Route: 048
  7. ZOLPIDEM [Concomitant]
     Route: 048
  8. ATARAX [Concomitant]
     Indication: PREMEDICATION
     Route: 048
     Dates: start: 20100614, end: 20100614
  9. MOPRAL [Concomitant]
     Indication: PREMEDICATION
     Route: 048
     Dates: start: 20100615, end: 20100615
  10. TAGAMET [Concomitant]
     Indication: PREMEDICATION
     Route: 048
     Dates: start: 20100615, end: 20100615

REACTIONS (2)
  - ANAPHYLACTIC SHOCK [None]
  - CARDIO-RESPIRATORY ARREST [None]
